FAERS Safety Report 8843550 (Version 1)
Quarter: 2012Q4

REPORT INFORMATION
  Report Type: 
  Country: CA (occurrence: CA)
  Receive Date: 20121016
  Receipt Date: 20121016
  Transmission Date: 20130627
  Serious: Yes (Other)
  Sender: FDA-Public Use
  Company Number: PHHY2005CA007736

PATIENT
  Age: 52 Year
  Sex: Male

DRUGS (1)
  1. SANDOSTATIN LAR [Suspect]
     Indication: COLON CANCER
     Dosage: 30 mg,every 4 weeks
     Dates: start: 20051104

REACTIONS (5)
  - Rhinorrhoea [Unknown]
  - Productive cough [Unknown]
  - Ageusia [Unknown]
  - Paraesthesia [Unknown]
  - Fatigue [Unknown]
